FAERS Safety Report 24979815 (Version 1)
Quarter: 2025Q1

REPORT INFORMATION
  Report Type: Spontaneous
  Country: US (occurrence: US)
  Receive Date: 20250218
  Receipt Date: 20250218
  Transmission Date: 20250409
  Serious: No
  Sender: NOVAST LABORATORIES LTD
  Company Number: US-NOVAST LABORATORIES INC.-2025NOV000187

PATIENT

DRUGS (2)
  1. NEW DAY [Suspect]
     Active Substance: LEVONORGESTREL
     Indication: Post coital contraception
     Route: 048
     Dates: start: 20250107
  2. NEW DAY [Suspect]
     Active Substance: LEVONORGESTREL
     Route: 048
     Dates: start: 20250113

REACTIONS (3)
  - Pregnancy on oral contraceptive [Unknown]
  - Hypomenorrhoea [Unknown]
  - Medication error [Unknown]

NARRATIVE: CASE EVENT DATE: 20250113
